FAERS Safety Report 15342161 (Version 2)
Quarter: 2018Q4

REPORT INFORMATION
  Report Type: Spontaneous
  Country: US (occurrence: US)
  Receive Date: 20180902
  Receipt Date: 20181027
  Transmission Date: 20190204
  Serious: No
  Sender: FDA-Public Use
  Company Number: US-JNJFOC-20180807191

PATIENT
  Age: 5 Decade
  Sex: Male

DRUGS (2)
  1. MENS ROGAINE EXTRA STRENGTH UNSCENTED [Suspect]
     Active Substance: MINOXIDIL
     Route: 061
  2. MENS ROGAINE EXTRA STRENGTH UNSCENTED [Suspect]
     Active Substance: MINOXIDIL
     Indication: ALOPECIA
     Dosage: PING PONG BALL SIZE
     Route: 061
     Dates: start: 20160315, end: 20180802

REACTIONS (10)
  - Skin exfoliation [Not Recovered/Not Resolved]
  - Application site erosion [Recovering/Resolving]
  - Burning sensation [Recovered/Resolved]
  - Dandruff [Not Recovered/Not Resolved]
  - Rash [Recovered/Resolved]
  - Application site hypersensitivity [Recovering/Resolving]
  - Application site discharge [Recovering/Resolving]
  - Pain [Recovered/Resolved]
  - Incorrect dose administered [Unknown]
  - Pruritus [Recovering/Resolving]

NARRATIVE: CASE EVENT DATE: 20160315
